FAERS Safety Report 20215851 (Version 1)
Quarter: 2021Q4

REPORT INFORMATION
  Report Type: Spontaneous
  Country: US (occurrence: US)
  Receive Date: 20211222
  Receipt Date: 20211222
  Transmission Date: 20220303
  Serious: Yes (Hospitalization)
  Sender: FDA-Public Use
  Company Number: US-ENDO PHARMACEUTICALS INC-2021-013686

PATIENT
  Age: 53 Year
  Sex: Female

DRUGS (36)
  1. KETALAR [Suspect]
     Active Substance: KETAMINE HYDROCHLORIDE
     Indication: Procedural pain
     Dosage: 10 MG, [0.1-0.15 MG/KG] TWO TO THREE TIMES A DAY, (30 MG) ON HD 7
     Route: 040
  2. KETALAR [Suspect]
     Active Substance: KETAMINE HYDROCHLORIDE
     Indication: Sedative therapy
     Dosage: 30 MG, INFUSION (HD 8)
     Route: 041
  3. KETALAR [Suspect]
     Active Substance: KETAMINE HYDROCHLORIDE
     Indication: Pain
     Dosage: 30 MG, INFUSION (HD 9)
     Route: 041
  4. KETALAR [Suspect]
     Active Substance: KETAMINE HYDROCHLORIDE
     Indication: Breakthrough pain
     Dosage: 0.1 MG/KG/HOUR, IV DRIP, ON HD 10
     Route: 041
  5. KETALAR [Suspect]
     Active Substance: KETAMINE HYDROCHLORIDE
     Dosage: OVER THE NEXT 4 DAYS, A TOTAL OF 520 MG, INFUSION WAS DELIVERED/DRIP WAS DISCONTINUED ON HD 14
     Route: 041
  6. KETALAR [Suspect]
     Active Substance: KETAMINE HYDROCHLORIDE
     Dosage: 20 MG [0.2 MG/KG], UNKNOWN (OVER AN HOUR) ON HD 16
     Route: 065
  7. DULOXETINE [Suspect]
     Active Substance: DULOXETINE
     Indication: Seasonal affective disorder
     Dosage: 60 MG, UNKNOWN (ON HD 7)
     Route: 065
  8. DULOXETINE [Suspect]
     Active Substance: DULOXETINE
     Dosage: 60 MG, UNKNOWN (ON HD 8)
     Route: 065
  9. HYDROMORPHONE [Concomitant]
     Active Substance: HYDROMORPHONE
     Indication: Procedural pain
     Dosage: UNK UNKNOWN, UNKNOWN (UNITL HD 7)
     Route: 065
  10. PROPOFOL [Concomitant]
     Active Substance: PROPOFOL
     Indication: Product used for unknown indication
     Dosage: 170 MG, UNKNOWN (ON HD 9)
     Route: 065
  11. PROPOFOL [Concomitant]
     Active Substance: PROPOFOL
     Dosage: 40 MG, UNKNOWN (ON HD 13)
     Route: 065
  12. PROPOFOL [Concomitant]
     Active Substance: PROPOFOL
     Dosage: 60 MG, UNKNOWN (ON HD 18)
     Route: 065
  13. PROPOFOL [Concomitant]
     Active Substance: PROPOFOL
     Dosage: 160 MG, UNKNOWN (ON HD 20)
     Route: 065
  14. MORPHINE [Concomitant]
     Active Substance: MORPHINE
     Indication: Pain
     Dosage: UNK UNKNOWN, UNKNOWN (ON HD 10)
     Route: 042
  15. MIDAZOLAM [Concomitant]
     Active Substance: MIDAZOLAM
     Indication: Sedative therapy
     Dosage: 2 MG, UNKNOWN (ON HD 11)
     Route: 065
  16. MIDAZOLAM [Concomitant]
     Active Substance: MIDAZOLAM
     Dosage: 2 MG OVER AN HOUR, UNKNOWN (ON HD 16)
     Route: 065
  17. MIDAZOLAM [Concomitant]
     Active Substance: MIDAZOLAM
     Dosage: 1 MG, UNKNOWN (ON HD 23)
     Route: 065
  18. FENTANYL [Concomitant]
     Active Substance: FENTANYL
     Indication: Sedative therapy
     Dosage: 225 MG  GIVEN OVER AN HOUR, UNKNOWN (ON HD 16)
     Route: 065
  19. ORAL MORPHINE EQUIVALENTS [Concomitant]
     Indication: Product used for unknown indication
     Dosage: 3 MG, UNKNOWN (HD 7)
     Route: 065
  20. ORAL MORPHINE EQUIVALENTS [Concomitant]
     Dosage: 30 NG, UNKNOWN (HD 9)
     Route: 065
  21. ORAL MORPHINE EQUIVALENTS [Concomitant]
     Dosage: 22500 MG, UNKNOWN (HD 10)
     Route: 065
  22. ORAL MORPHINE EQUIVALENTS [Concomitant]
     Dosage: 13236 MG, UNKNOWN (HD 11)
     Route: 065
  23. ORAL MORPHINE EQUIVALENTS [Concomitant]
     Dosage: 4929 MG, UNK (HD 12)
     Route: 065
  24. ORAL MORPHINE EQUIVALENTS [Concomitant]
     Dosage: 28993 MG, UNKNOWN (HD 13)
     Route: 065
  25. ORAL MORPHINE EQUIVALENTS [Concomitant]
     Dosage: 4096 MG, UNKNOWN (HD 14)
     Route: 065
  26. ORAL MORPHINE EQUIVALENTS [Concomitant]
     Dosage: 197 MG, UNKNOWN (HD 15)
     Route: 065
  27. ORAL MORPHINE EQUIVALENTS [Concomitant]
     Dosage: 22715 MG, UNKNOWN (HD 16)
     Route: 065
  28. ORAL MORPHINE EQUIVALENTS [Concomitant]
     Dosage: 31 MG, UNKNOWN (HD 17)
     Route: 065
  29. ORAL MORPHINE EQUIVALENTS [Concomitant]
     Dosage: 96 MG, UNKNOWN (HD 18)
     Route: 065
  30. ORAL MORPHINE EQUIVALENTS [Concomitant]
     Dosage: 16 MG, UNKNOWN (HD 19)
     Route: 065
  31. ORAL MORPHINE EQUIVALENTS [Concomitant]
     Dosage: 20008 MG, UNKNOWN (HD 20)
     Route: 065
  32. ORAL MORPHINE EQUIVALENTS [Concomitant]
     Dosage: 12 MG, UNKNOWN (HD 21)
     Route: 065
  33. ORAL MORPHINE EQUIVALENTS [Concomitant]
     Dosage: 10 MG, UNKNOWN (HD 22)
     Route: 065
  34. ORAL MORPHINE EQUIVALENTS [Concomitant]
     Dosage: 2013 MG, UNKNOWN (HD 23)
     Route: 065
  35. ORAL MORPHINE EQUIVALENTS [Concomitant]
     Dosage: 13 MG, UNKNOWN (HD 24)
     Route: 065
  36. ORAL MORPHINE EQUIVALENTS [Concomitant]
     Dosage: 10 MG, UNKNOWN (HD 25)
     Route: 065

REACTIONS (2)
  - Mania [Recovered/Resolved]
  - Off label use [Recovered/Resolved]
